FAERS Safety Report 23866597 (Version 1)
Quarter: 2024Q2

REPORT INFORMATION
  Report Type: Spontaneous
  Country: US (occurrence: None)
  Receive Date: 20240517
  Receipt Date: 20240517
  Transmission Date: 20240715
  Serious: Yes (Other)
  Sender: FDA-Public Use
  Company Number: US-Emmaus Medical, Inc.-EMM202405-000234

PATIENT
  Age: 40 Year
  Sex: Male
  Weight: 109.2 kg

DRUGS (3)
  1. ENDARI [Suspect]
     Active Substance: GLUTAMINE
     Indication: Sickle cell disease
     Dosage: 15 G
     Route: 048
     Dates: start: 2018
  2. ENDARI [Suspect]
     Active Substance: GLUTAMINE
     Dosage: 15 G
     Route: 048
     Dates: start: 20240308
  3. ENDARI [Suspect]
     Active Substance: GLUTAMINE
     Dosage: 15 G
     Route: 048
     Dates: start: 20240312

REACTIONS (3)
  - Osteonecrosis [Recovering/Resolving]
  - Therapy interrupted [Unknown]
  - Off label use [Unknown]

NARRATIVE: CASE EVENT DATE: 20240308
